FAERS Safety Report 15433767 (Version 7)
Quarter: 2021Q4

REPORT INFORMATION
  Report Type: Report from Study
  Country: US (occurrence: US)
  Receive Date: 20180927
  Receipt Date: 20211129
  Transmission Date: 20220303
  Serious: Yes (Hospitalization, Other)
  Sender: FDA-Public Use
  Company Number: US-INCYTE CORPORATION-2018IN009732

PATIENT

DRUGS (18)
  1. JAKAFI [Suspect]
     Active Substance: RUXOLITINIB
     Indication: Polycythaemia vera
     Dosage: 15 MG, BID
     Route: 065
     Dates: start: 20180903
  2. JAKAFI [Suspect]
     Active Substance: RUXOLITINIB
     Indication: Myelofibrosis
     Dosage: 7.5 MG, BID
     Route: 048
     Dates: start: 20181003, end: 20181008
  3. JAKAFI [Suspect]
     Active Substance: RUXOLITINIB
     Dosage: 10 MG, BID
     Route: 048
     Dates: start: 20181008, end: 201811
  4. JAKAFI [Suspect]
     Active Substance: RUXOLITINIB
     Dosage: 5 MG, BID
     Route: 048
     Dates: start: 201811
  5. JAKAFI [Suspect]
     Active Substance: RUXOLITINIB
     Dosage: 10 MG, BID
     Route: 048
  6. JAKAFI [Suspect]
     Active Substance: RUXOLITINIB
     Dosage: 5 MG, QD
     Route: 048
  7. JAKAFI [Suspect]
     Active Substance: RUXOLITINIB
     Dosage: 15 MILLIGRAM, BID
     Route: 048
     Dates: start: 20180309
  8. JAKAFI [Suspect]
     Active Substance: RUXOLITINIB
     Dosage: 5 MG (1/2 TABLET) BID
     Route: 048
  9. JAKAFI [Suspect]
     Active Substance: RUXOLITINIB
     Dosage: 5 MG (0.5 PILL), BID
     Route: 065
  10. ATENOLOL [Concomitant]
     Active Substance: ATENOLOL
     Indication: Product used for unknown indication
     Dosage: UNK
     Route: 065
  11. ASPIRIN [Concomitant]
     Active Substance: ASPIRIN
     Indication: Product used for unknown indication
     Dosage: UNK
     Route: 065
  12. SIMVASTATIN [Concomitant]
     Active Substance: SIMVASTATIN
     Indication: Product used for unknown indication
     Dosage: UNK
     Route: 065
  13. LEXAPRO [Concomitant]
     Active Substance: ESCITALOPRAM OXALATE
     Indication: Product used for unknown indication
     Dosage: UNK
     Route: 065
  14. ALLOPURINOL [Concomitant]
     Active Substance: ALLOPURINOL
     Indication: Product used for unknown indication
     Dosage: UNK
     Route: 065
  15. RANITIDINE [Concomitant]
     Active Substance: RANITIDINE
     Indication: Product used for unknown indication
     Dosage: UNK
     Route: 065
  16. PLAVIX [Concomitant]
     Active Substance: CLOPIDOGREL BISULFATE
     Indication: Product used for unknown indication
     Dosage: UNK
     Route: 065
  17. DRONABINOL [Concomitant]
     Active Substance: DRONABINOL
     Indication: Product used for unknown indication
     Dosage: UNK
     Route: 065
  18. CLOPIDOGREL [Concomitant]
     Active Substance: CLOPIDOGREL BISULFATE
     Indication: Product used for unknown indication
     Dosage: UNK
     Route: 065

REACTIONS (13)
  - Dementia [Recovering/Resolving]
  - Hip fracture [Unknown]
  - Fall [Unknown]
  - Haemoglobin decreased [Unknown]
  - Increased appetite [Unknown]
  - Hypervigilance [Unknown]
  - Platelet count abnormal [Recovered/Resolved]
  - Hypersomnia [Recovered/Resolved]
  - Hypoaesthesia [Unknown]
  - Paraesthesia [Unknown]
  - Incorrect dose administered [Unknown]
  - Wrong technique in product usage process [Unknown]
  - Weight increased [Unknown]

NARRATIVE: CASE EVENT DATE: 20180901
